FAERS Safety Report 5957567-1 (Version None)
Quarter: 2008Q4

REPORT INFORMATION
  Report Type: 
  Country: None (occurrence: None)
  Receive Date: 20081117
  Receipt Date: 20081117
  Transmission Date: 20090506
  Serious: Yes (Other)
  Sender: FDA-Public Use
  Company Number: None

PATIENT
  Sex: Female
  Weight: 68.0396 kg

DRUGS (3)
  1. NEULASTA [Suspect]
     Indication: CHEMOTHERAPY
     Dosage: 6MG EVERY 3 WKS ARM IM
     Route: 030
     Dates: start: 20080925
  2. NEULASTA [Suspect]
     Indication: CHEMOTHERAPY
     Dosage: 6MG EVERY 3 WKS ARM IM
     Route: 030
     Dates: start: 20081014
  3. NEULASTA [Suspect]
     Indication: CHEMOTHERAPY
     Dosage: 6MG EVERY 3 WKS ARM IM
     Route: 030
     Dates: start: 20081104

REACTIONS (3)
  - CHEST DISCOMFORT [None]
  - CHEST PAIN [None]
  - DYSPNOEA [None]
